FAERS Safety Report 5211700-8 (Version None)
Quarter: 2007Q1

REPORT INFORMATION
  Report Type: 
  Country: None (occurrence: None)
  Receive Date: 20070118
  Receipt Date: 20070108
  Transmission Date: 20070707
  Serious: Yes (Hospitalization)
  Sender: FDA-Public Use
  Company Number: CA-BAYER-200612657GDS

PATIENT
  Age: 71 Year
  Sex: Male
  Weight: 119 kg

DRUGS (4)
  1. SORAFENIB [Suspect]
     Indication: RENAL CELL CARCINOMA STAGE UNSPECIFIED
     Dosage: TOTAL DAILY DOSE: 800 MG
     Route: 048
     Dates: start: 20060531, end: 20060613
  2. HYZAAR [Concomitant]
     Indication: HYPERTENSION
     Route: 048
     Dates: start: 20000101, end: 20060116
  3. ATENOLOL [Concomitant]
     Indication: HYPERTENSION
     Route: 048
     Dates: start: 20030601, end: 20060616
  4. ZANTAC [Concomitant]
     Indication: DYSPEPSIA
     Route: 048
     Dates: start: 20060305

REACTIONS (5)
  - BLOOD CREATININE INCREASED [None]
  - HYPOTENSION [None]
  - MALAISE [None]
  - NEUTROPENIA [None]
  - RASH [None]
